FAERS Safety Report 5523468-6 (Version None)
Quarter: 2007Q4

REPORT INFORMATION
  Report Type: 
  Country: None (occurrence: None)
  Receive Date: 20071119
  Receipt Date: 20071119
  Transmission Date: 20080405
  Serious: No
  Sender: FDA-Public Use
  Company Number: None

PATIENT

DRUGS (1)
  1. PHENOL 5% IN ALMOND OIL [Suspect]
     Dosage: INJECTABLE

REACTIONS (7)
  - CEREBRAL INFARCTION [None]
  - CIRCULATORY COLLAPSE [None]
  - DRUG TOXICITY [None]
  - MEDICATION ERROR [None]
  - MULTI-ORGAN FAILURE [None]
  - RESPIRATORY ARREST [None]
  - VENTRICULAR TACHYCARDIA [None]
